FAERS Safety Report 5449583-3 (Version None)
Quarter: 2007Q3

REPORT INFORMATION
  Report Type: 
  Country: None (occurrence: None)
  Receive Date: 20070910
  Receipt Date: 20060511
  Transmission Date: 20080115
  Serious: Yes (Death)
  Sender: FDA-Public Use
  Company Number: 2006VX001787

PATIENT
  Age: 59 Year
  Sex: Female

DRUGS (3)
  1. TASMAR [Suspect]
     Dosage: 100 MG; TID; PO
     Route: 048
     Dates: end: 19380101
  2. SINEMET [Concomitant]
  3. CHEMOTHERAPY [Concomitant]

REACTIONS (1)
  - RESPIRATORY DISTRESS [None]
